FAERS Safety Report 5232140-1 (Version None)
Quarter: 2007Q1

REPORT INFORMATION
  Report Type: 
  Country: None (occurrence: None)
  Receive Date: 20070205
  Receipt Date: 20070119
  Transmission Date: 20070707
  Serious: Yes (Hospitalization)
  Sender: FDA-Public Use
  Company Number: 8021417

PATIENT
  Age: 53 Year
  Sex: Female
  Weight: 129.55 kg

DRUGS (6)
  1. LORTAB [Suspect]
     Indication: PAIN
     Dosage: 10 MG PRN PO
     Route: 048
     Dates: end: 20051101
  2. KADIAN [Concomitant]
  3. MAXZIDE [Concomitant]
  4. SYNTHROID [Concomitant]
  5. DILANTIN [Concomitant]
  6. NEURONTIN [Concomitant]

REACTIONS (4)
  - BLINDNESS [None]
  - CEREBROVASCULAR ACCIDENT [None]
  - LABORATORY TEST ABNORMAL [None]
  - NUCLEAR MAGNETIC RESONANCE IMAGING BRAIN ABNORMAL [None]
